FAERS Safety Report 9485677 (Version 1)
Quarter: 2013Q3

REPORT INFORMATION
  Report Type: Spontaneous
  Country: US (occurrence: None)
  Receive Date: 20130827
  Receipt Date: 20130827
  Transmission Date: 20140515
  Serious: No
  Sender: FDA-Public Use
  Company Number: None

PATIENT
  Age: 11 Year
  Sex: Male
  Weight: 41 kg

DRUGS (8)
  1. GAMMAGARD [Suspect]
     Indication: LYMPHATIC DISORDER
     Route: 042
     Dates: start: 20130531
  2. GAMMAGARD [Suspect]
     Indication: MENTAL RETARDATION
     Route: 042
     Dates: start: 20130531
  3. GAMMAGARD [Suspect]
     Route: 042
     Dates: start: 20130531
  4. ALBUMIN [Concomitant]
  5. FUROSEMIDE [Concomitant]
  6. SYNOROPATON [Concomitant]
  7. BENADRYL [Concomitant]
  8. TYLENOL [Concomitant]

REACTIONS (3)
  - Hypotension [None]
  - Bradycardia [None]
  - Infusion related reaction [None]
